FAERS Safety Report 14292500 (Version 2)
Quarter: 2018Q1

REPORT INFORMATION
  Report Type: Spontaneous
  Country: PT (occurrence: PT)
  Receive Date: 20171215
  Receipt Date: 20180309
  Transmission Date: 20180509
  Serious: Yes (Life-Threatening)
  Sender: FDA-Public Use
  Company Number: US-ASTRAZENECA-2017SF25508

PATIENT
  Age: 3 Month
  Sex: Male
  Weight: 3.8 kg

DRUGS (4)
  1. COLECALCIFEROL [Concomitant]
     Active Substance: CHOLECALCIFEROL
     Indication: PROPHYLAXIS
     Route: 048
     Dates: start: 20170101
  2. IRON [Concomitant]
     Active Substance: IRON
     Indication: PROPHYLAXIS
     Dosage: 57 MG
     Route: 048
     Dates: start: 20171011
  3. DOMPERIDONE [Concomitant]
     Active Substance: DOMPERIDONE
     Indication: PROPHYLAXIS
     Dosage: 0.7MG UNKNOWN
     Route: 048
     Dates: start: 20170101
  4. SYNAGIS [Suspect]
     Active Substance: PALIVIZUMAB
     Indication: ANTIVIRAL PROPHYLAXIS
     Dosage: 15 MG/KG/MES, 1 DF
     Route: 030
     Dates: start: 20171001, end: 20171124

REACTIONS (8)
  - Hypotonia [Recovered/Resolved]
  - Unresponsive to stimuli [Recovered/Resolved]
  - Livedo reticularis [Recovered/Resolved]
  - Hyporeflexia [Recovered/Resolved]
  - PO2 decreased [Recovered/Resolved]
  - Pallor [Recovered/Resolved]
  - Hyporesponsive to stimuli [Recovered/Resolved]
  - Apnoea [Recovered/Resolved]

NARRATIVE: CASE EVENT DATE: 20171124
